FAERS Safety Report 8482805-3 (Version None)
Quarter: 2012Q3

REPORT INFORMATION
  Report Type: 
  Country: None (occurrence: None)
  Receive Date: 20120702
  Receipt Date: 20120620
  Transmission Date: 20120928
  Serious: No
  Sender: FDA-Public Use
  Company Number: US-ASTRAZENECA-2012SE41720

PATIENT
  Sex: Female

DRUGS (2)
  1. CRESTOR [Suspect]
     Route: 048
  2. CHOLESTEROL MEDICATION [Concomitant]

REACTIONS (2)
  - VASOCONSTRICTION [None]
  - BLOOD CHOLESTEROL INCREASED [None]
